FAERS Safety Report 4556441-5 (Version None)
Quarter: 2005Q1

REPORT INFORMATION
  Report Type: 
  Country: None (occurrence: None)
  Receive Date: 20050114
  Receipt Date: 20050105
  Transmission Date: 20050727
  Serious: Yes (Hospitalization, Other)
  Sender: FDA-Public Use
  Company Number: USA-2003-0008824

PATIENT
  Age: 54 Year
  Sex: Male
  Weight: 108.8 kg

DRUGS (13)
  1. OXYCONTIN [Suspect]
     Indication: PAIN
     Dosage: 10 MG, TID, ORAL
     Route: 048
     Dates: start: 19991105
  2. VICODIN [Concomitant]
  3. LORTAB [Concomitant]
  4. IBUPROFEN [Concomitant]
  5. THEO-DUR [Concomitant]
  6. RISPERDAL [Concomitant]
  7. ZOLOFT [Concomitant]
  8. KLONOPIN [Concomitant]
  9. TRAZODONE (TRAZODONE) [Concomitant]
  10. ZOCOR [Concomitant]
  11. PROVENTIL [Concomitant]
  12. SONATA [Concomitant]
  13. MAXZIDE [Concomitant]

REACTIONS (19)
  - ARTHRALGIA [None]
  - ASTHENIA [None]
  - BACK PAIN [None]
  - DECREASED APPETITE [None]
  - DECREASED INTEREST [None]
  - DEPRESSION [None]
  - DRUG DEPENDENCE [None]
  - DRUG TOLERANCE [None]
  - DRUG WITHDRAWAL SYNDROME [None]
  - HALLUCINATION, VISUAL [None]
  - IRRITABILITY [None]
  - NECK PAIN [None]
  - NERVOUSNESS [None]
  - NIGHTMARE [None]
  - PAIN [None]
  - POST-TRAUMATIC STRESS DISORDER [None]
  - SUICIDAL IDEATION [None]
  - THERAPY NON-RESPONDER [None]
  - WEIGHT DECREASED [None]
